FAERS Safety Report 4428172-3 (Version None)
Quarter: 2004Q3

REPORT INFORMATION
  Report Type: 
  Country: None (occurrence: None)
  Receive Date: 20040726
  Receipt Date: 20040312
  Transmission Date: 20050211
  Serious: No
  Sender: FDA-Public Use
  Company Number: USA040361909

PATIENT
  Age: 55 Year
  Sex: Female

DRUGS (10)
  1. FORTEO [Suspect]
     Indication: OSTEOPOROSIS
     Dates: start: 20040311
  2. MEDROL [Concomitant]
  3. CELEBREX [Concomitant]
  4. LOSARTAN POTASSIUM W/HYDROCHLOROTHIAZIDE [Concomitant]
  5. VERAPAMIL [Concomitant]
  6. NEXIUM [Concomitant]
  7. FOLIC ACID [Concomitant]
  8. CALCIUM [Concomitant]
  9. OXYCONTIN [Concomitant]
  10. CENTRUM [Concomitant]

REACTIONS (1)
  - FLUSHING [None]
